FAERS Safety Report 9444733 (Version 2)
Quarter: 2013Q4

REPORT INFORMATION
  Report Type: Spontaneous
  Country: GB (occurrence: GB)
  Receive Date: 20130807
  Receipt Date: 20131129
  Transmission Date: 20140711
  Serious: Yes (Other)
  Sender: FDA-Public Use
  Company Number: PHFR2013GB004408

PATIENT
  Sex: Female

DRUGS (2)
  1. ESTRADIOL [Suspect]
     Indication: HORMONE REPLACEMENT THERAPY
     Dosage: 2 MG, QD
     Dates: start: 20110729, end: 20121002
  2. CYPROTERONE ACETATE [Suspect]
     Indication: HORMONE REPLACEMENT THERAPY
     Dosage: 12.5 MG, QD (30 TIMES RECOMMENDED DOSE)
     Dates: start: 20110729, end: 20121002

REACTIONS (23)
  - Madarosis [Not Recovered/Not Resolved]
  - Abdominal distension [Not Recovered/Not Resolved]
  - Periorbital cellulitis [Not Recovered/Not Resolved]
  - Adrenal disorder [Not Recovered/Not Resolved]
  - Lid sulcus deepened [Not Recovered/Not Resolved]
  - Skin atrophy [Not Recovered/Not Resolved]
  - Muscle atrophy [Not Recovered/Not Resolved]
  - Premature menopause [Not Recovered/Not Resolved]
  - Opportunistic infection [Not Recovered/Not Resolved]
  - Endometrial disorder [Not Recovered/Not Resolved]
  - Ovarian disorder [Not Recovered/Not Resolved]
  - Incorrect dose administered [Unknown]
  - Off label use [Unknown]
  - Impaired reasoning [Unknown]
  - Flushing [Unknown]
  - Fatigue [Unknown]
  - Mental impairment [Unknown]
  - Vaginal haemorrhage [Unknown]
  - Alopecia [Not Recovered/Not Resolved]
  - Overdose [Unknown]
  - Dizziness [Unknown]
  - Vomiting [Unknown]
  - Back pain [Unknown]
